FAERS Safety Report 12864942 (Version 1)
Quarter: 2016Q4

REPORT INFORMATION
  Report Type: Spontaneous
  Country: US (occurrence: US)
  Receive Date: 20161019
  Receipt Date: 20161019
  Transmission Date: 20170207
  Serious: Yes (Other)
  Sender: FDA-Public Use
  Company Number: None

PATIENT
  Age: 77 Year
  Sex: Male
  Weight: 81 kg

DRUGS (23)
  1. PREDNISONE. [Concomitant]
     Active Substance: PREDNISONE
  2. LYCOPENE [Concomitant]
     Active Substance: LYCOPENE
  3. MECLIZNE [Concomitant]
  4. DHA+EPA [Concomitant]
  5. SULFAMETHOXAZOLE/TRIMETHOPRIM [Concomitant]
     Active Substance: SULFAMETHOXAZOLE\TRIMETHOPRIM
  6. FWXOFENADINE [Concomitant]
  7. CALCIUM LACTATE [Concomitant]
     Active Substance: CALCIUM LACTATE
  8. TYLENOL [Concomitant]
     Active Substance: ACETAMINOPHEN
  9. BRILINTA [Suspect]
     Active Substance: TICAGRELOR
     Indication: STENT PLACEMENT
     Dosage: ?          QUANTITY:1 TABLET(S);?
     Route: 048
     Dates: start: 20161003
  10. ATORVASTATIN [Suspect]
     Active Substance: ATORVASTATIN
  11. ASPIRIN. [Concomitant]
     Active Substance: ASPIRIN
  12. CENTRUM SILVER MULTI GENERIC [Concomitant]
  13. BACLOFIN [Concomitant]
  14. FISH OIL [Concomitant]
     Active Substance: FISH OIL
  15. CRANBERRY. [Concomitant]
     Active Substance: CRANBERRY
  16. ROSUVASTATIN CALCIUM 5MG SUN [Suspect]
     Active Substance: ROSUVASTATIN CALCIUM
     Indication: HIGH DENSITY LIPOPROTEIN DECREASED
     Dosage: ?          QUANTITY:1 TABLET(S);?
     Route: 048
     Dates: start: 20161010, end: 20161011
  17. FLUTICASONE PROPINATE [Concomitant]
     Active Substance: FLUTICASONE PROPIONATE
  18. BETA-SISTOSTEROL [Concomitant]
  19. VITAMIN D [Concomitant]
     Active Substance: CHOLECALCIFEROL
  20. MAGNESIIUM [Concomitant]
  21. C-TESTOSTERONE [Concomitant]
  22. AMODIPINE BESYLATE [Concomitant]
  23. TERISOSIN [Concomitant]

REACTIONS (3)
  - Deafness unilateral [None]
  - Muscle disorder [None]
  - Vertigo [None]

NARRATIVE: CASE EVENT DATE: 20161011
